FAERS Safety Report 6985858-4 (Version None)
Quarter: 2010Q3

REPORT INFORMATION
  Report Type: 
  Country: None (occurrence: None)
  Receive Date: 20100915
  Receipt Date: 20100902
  Transmission Date: 20110219
  Serious: Yes (Hospitalization)
  Sender: FDA-Public Use
  Company Number: US-ELI_LILLY_AND_COMPANY-US201009002129

PATIENT
  Sex: Male

DRUGS (9)
  1. FORTEO [Suspect]
     Indication: OSTEOPOROSIS
     Dosage: 20 UG, UNK
  2. CARVEDILOL [Concomitant]
     Dosage: 3.125 MG, DAILY (1/D)
  3. HYDROCHLOROTHIAZIDE [Concomitant]
     Dosage: 25 MG, DAILY (1/D)
  4. NORVASC [Concomitant]
     Dosage: 5 MG, DAILY (1/D)
  5. CELEBREX [Concomitant]
     Dosage: 200 MG, DAILY (1/D)
  6. SPIRIVA [Concomitant]
     Dosage: UNK, DAILY (1/D)
     Route: 055
  7. ASPIRIN [Concomitant]
     Dosage: UNK, OTHER
  8. PREVACID [Concomitant]
     Dosage: UNK, DAILY (1/D)
  9. BENICAR [Concomitant]
     Dosage: 40 MG, DAILY (1/D)

REACTIONS (2)
  - ARTHROPATHY [None]
  - SURGERY [None]
